FAERS Safety Report 8938091 (Version 3)
Quarter: 2013Q1

REPORT INFORMATION
  Report Type: Spontaneous
  Country: US (occurrence: US)
  Receive Date: 20121203
  Receipt Date: 20130115
  Transmission Date: 20140127
  Serious: No
  Sender: FDA-Public Use
  Company Number: US-PFIZER INC-2012302097

PATIENT
  Age: 53 Year
  Sex: Female
  Weight: 81.63 kg

DRUGS (7)
  1. ZOLOFT [Suspect]
     Indication: DEPRESSION
     Dosage: 100 MG, 1X/DAY
     Route: 048
  2. ZOLOFT [Suspect]
     Indication: ANXIETY
     Dosage: 100 MG, 1X/DAY
     Route: 048
     Dates: end: 20121124
  3. ZOLOFT [Suspect]
     Dosage: UNK
     Route: 048
     Dates: start: 20121126, end: 20121127
  4. ZOLOFT [Suspect]
     Dosage: 50MG ONCE A DAY BY CUTTING 100MG
     Route: 048
     Dates: start: 20121128
  5. CYMBALTA [Suspect]
     Dosage: UNK, 1X/DAY
     Route: 048
  6. SYNTHROID [Concomitant]
     Dosage: UNK
  7. DEPO-PROVERA [Concomitant]
     Dosage: UNK

REACTIONS (3)
  - Headache [Not Recovered/Not Resolved]
  - Anxiety [Not Recovered/Not Resolved]
  - Panic reaction [Not Recovered/Not Resolved]
